FAERS Safety Report 20874502 (Version 6)
Quarter: 2023Q1

REPORT INFORMATION
  Report Type: Report from Study
  Country: JP (occurrence: JP)
  Receive Date: 20220525
  Receipt Date: 20230207
  Transmission Date: 20230418
  Serious: Yes (Hospitalization)
  Sender: FDA-Public Use
  Company Number: JP-JNJFOC-20220544828

PATIENT
  Age: 71 Year
  Sex: Female
  Weight: 45.8 kg

DRUGS (27)
  1. AMIVANTAMAB [Suspect]
     Active Substance: AMIVANTAMAB
     Indication: Non-small cell lung cancer metastatic
     Route: 042
     Dates: start: 20220323, end: 20220421
  2. ZOLPIDEM TARTRATE [Concomitant]
     Active Substance: ZOLPIDEM TARTRATE
     Indication: Insomnia
     Route: 048
     Dates: start: 20210101
  3. LANSOPRAZOLE [Concomitant]
     Active Substance: LANSOPRAZOLE
     Indication: Prophylaxis against gastrointestinal ulcer
     Route: 048
     Dates: start: 20220314
  4. LOXOPROFEN SODIUM DIHYDRATE [Concomitant]
     Active Substance: LOXOPROFEN SODIUM DIHYDRATE
     Indication: Cancer pain
     Route: 048
     Dates: start: 20220314
  5. MINOCYCLINE HYDROCHLORIDE [Concomitant]
     Active Substance: MINOCYCLINE HYDROCHLORIDE
     Indication: Prophylaxis
     Route: 048
     Dates: start: 20220323
  6. OXYGEN [Concomitant]
     Active Substance: OXYGEN
     Indication: Prophylaxis
     Route: 055
     Dates: start: 20220323
  7. PROCHLORPERAZINE MALEATE [Concomitant]
     Active Substance: PROCHLORPERAZINE MALEATE
     Indication: Nausea
     Dosage: 1 DOSAGE NUMBER; NO DOSAGE UNIT REPORTED
     Route: 048
     Dates: start: 20220328, end: 20220518
  8. CALCIUM GLUCONATE\DEXTROSE\MAGNESIUM CHLORIDE\POTASSIUM CHLORIDE\SODIU [Concomitant]
     Active Substance: CALCIUM GLUCONATE\DEXTROSE\MAGNESIUM CHLORIDE\POTASSIUM CHLORIDE\SODIUM ACETATE\SODIUM CHLORIDE\TRIS
     Indication: Fluid replacement
     Route: 042
     Dates: start: 20220401
  9. EDOXABAN TOSYLATE [Concomitant]
     Active Substance: EDOXABAN TOSYLATE
     Indication: Jugular vein thrombosis
     Route: 048
     Dates: start: 20220404, end: 20220519
  10. EDOXABAN TOSYLATE [Concomitant]
     Active Substance: EDOXABAN TOSYLATE
     Indication: Thrombosis prophylaxis
     Route: 048
     Dates: start: 20220520
  11. HYDROMORPHONE HYDROCHLORIDE [Concomitant]
     Active Substance: HYDROMORPHONE HYDROCHLORIDE
     Indication: Cancer pain
     Dosage: REPORTED AS NARUSUS
     Route: 048
     Dates: start: 20220415
  12. HYDROMORPHONE HYDROCHLORIDE [Concomitant]
     Active Substance: HYDROMORPHONE HYDROCHLORIDE
     Indication: Dyspnoea
     Route: 048
     Dates: start: 20220411
  13. LEMBOREXANT [Concomitant]
     Active Substance: LEMBOREXANT
     Indication: Insomnia
     Route: 048
     Dates: start: 20220509, end: 20220515
  14. LEMBOREXANT [Concomitant]
     Active Substance: LEMBOREXANT
     Route: 048
     Dates: start: 20220509, end: 20220515
  15. HEPARINOID [Concomitant]
     Indication: Rash
     Dosage: 1 DOSAGE NUMBER; DOSAGE UNIT NOT REPORTED
     Route: 061
     Dates: start: 20220509
  16. HEPARINOID [Concomitant]
     Dosage: 1 DOSAGE NUMBER; DOSAGE UNIT NOT REPORTED
     Route: 061
     Dates: start: 20220516
  17. HEPARINOID [Concomitant]
     Dosage: 1 DOSAGE NUMBER; DOSAGE UNIT NOT REPORTED
     Route: 061
     Dates: start: 20220521
  18. DERMOSOL G [Concomitant]
     Indication: Rash
     Dosage: 1 DOSAGE NUMBER; DOSAGE UNIT NOT REPORTED
     Route: 061
     Dates: start: 20220509
  19. SODIUM GUALENATE MONOHYDRATE [Concomitant]
     Active Substance: SODIUM GUALENATE MONOHYDRATE
     Indication: Product used for unknown indication
     Dosage: 1 DOSAGE NUMBER; DOSAGE UNIT NOT REPORTED
     Route: 061
     Dates: start: 20220509
  20. POSTERISAN FORTE [ESCHERICHIA COLI, LYOPHILIZED;HYDROCORTISONE;PARAFFI [Concomitant]
     Indication: Rash
     Dosage: 1 DOSAGE NUMBER; DOSAGE UNIT NOT REPORTED
     Route: 061
     Dates: start: 20220509
  21. POSTERISAN FORTE [ESCHERICHIA COLI, LYOPHILIZED;HYDROCORTISONE;PARAFFI [Concomitant]
     Indication: Constipation
  22. ENORAS [Concomitant]
     Indication: Decreased appetite
     Dosage: 1 DOSAGE NUMBER; DOSAGE UNIT NOT REPORTED
     Route: 061
     Dates: start: 20220516
  23. CARBOHYDRATES\FATTY ACIDS\MINERALS\PROTEIN\VITAMINS [Concomitant]
     Active Substance: CARBOHYDRATES\FATTY ACIDS\MINERALS\PROTEIN\VITAMINS
     Indication: Decreased appetite
     Dosage: 1 DOSAGE NUMBER; DOSAGE UNIT NOT REPORTED
     Route: 048
     Dates: start: 20220516
  24. ESZOPICLONE [Concomitant]
     Active Substance: ESZOPICLONE
     Indication: Insomnia
     Dosage: 1 DOSAGE NUMBER; NO DOSAGE UNIT
     Route: 061
     Dates: start: 20220516
  25. VITAMEDIN [BENFOTIAMINE;CYANOCOBALAMIN;PYRIDOXINE HYDROCHLORIDE] [Concomitant]
     Indication: Jugular vein thrombosis
     Route: 042
     Dates: start: 20220526, end: 20220530
  26. VITAMEDIN [BENFOTIAMINE;CYANOCOBALAMIN;PYRIDOXINE HYDROCHLORIDE] [Concomitant]
     Indication: Malaise
  27. MAGNESIUM OXIDE [Concomitant]
     Active Substance: MAGNESIUM OXIDE
     Indication: Constipation
     Route: 048
     Dates: start: 20220509

REACTIONS (1)
  - Malaise [Recovering/Resolving]

NARRATIVE: CASE EVENT DATE: 20220519
